FAERS Safety Report 7521869-8 (Version None)
Quarter: 2011Q2

REPORT INFORMATION
  Report Type: 
  Country: None (occurrence: None)
  Receive Date: 20110524
  Receipt Date: 20110516
  Transmission Date: 20111010
  Serious: Yes (Other)
  Sender: FDA-Public Use
  Company Number: DSA_46747_2011

PATIENT
  Sex: Female

DRUGS (5)
  1. PROPECIA [Concomitant]
  2. WELLBUTRIN XL [Suspect]
     Indication: PRODUCT USED FOR UNKNOWN INDICATION
     Dosage: (300 MG DAILY)
     Dates: start: 20110304, end: 20110509
  3. VENLAFAXINE [Concomitant]
  4. EFFEXOR [Concomitant]
  5. USN PHEDRA [Concomitant]

REACTIONS (8)
  - AGGRESSION [None]
  - IMPATIENCE [None]
  - CRYING [None]
  - MOOD ALTERED [None]
  - HEADACHE [None]
  - SOMNOLENCE [None]
  - IRRITABILITY [None]
  - FATIGUE [None]
